FAERS Safety Report 4924504-8 (Version None)
Quarter: 2006Q1

REPORT INFORMATION
  Report Type: 
  Country: None (occurrence: None)
  Receive Date: 20060222
  Receipt Date: 20060123
  Transmission Date: 20060701
  Serious: Yes (Hospitalization)
  Sender: FDA-Public Use
  Company Number: HUN/2006/0041

PATIENT
  Age: 19 Year
  Sex: Male

DRUGS (4)
  1. PIROXICAM [Suspect]
     Indication: JOINT SPRAIN
     Dosage: ORAL
     Route: 048
  2. COUMARIN [PIROXICAM] (IN BROWN SOLUTION) [Suspect]
     Indication: JOINT SPRAIN
     Dosage: ORAL
     Route: 048
  3. SALICYLATES [SALICYLATES] (IN BROWN SOLUTION) [Suspect]
     Indication: JOINT SPRAIN
     Dosage: ORAL
     Route: 048
  4. UNIDENTIFIED TCM (YELLOW TABLET) [Suspect]
     Indication: JOINT SPRAIN
     Dosage: ORAL
     Route: 048

REACTIONS (4)
  - ACUTE GENERALISED EXANTHEMATOUS PUSTULOSIS [None]
  - DERMATITIS CONTACT [None]
  - MUCOSAL ULCERATION [None]
  - ORAL MUCOSA EROSION [None]
